FAERS Safety Report 5254618-7 (Version None)
Quarter: 2007Q1

REPORT INFORMATION
  Report Type: 
  Country: None (occurrence: None)
  Receive Date: 20070302
  Receipt Date: 20070219
  Transmission Date: 20070707
  Serious: Yes (Other)
  Sender: FDA-Public Use
  Company Number: US-PFIZER INC-2007014191

PATIENT
  Sex: Male
  Weight: 77.1 kg

DRUGS (10)
  1. NEURONTIN [Suspect]
     Indication: PAIN
  2. LYRICA [Suspect]
     Indication: PAIN
     Dosage: DAILY DOSE:250MG
  3. CHANTIX [Suspect]
     Indication: SMOKING CESSATION THERAPY
  4. OXYIR [Concomitant]
  5. WARFARIN SODIUM [Concomitant]
  6. ATIVAN [Concomitant]
  7. BACLOFEN [Concomitant]
  8. TYLENOL [Concomitant]
  9. FAMOTIDINE [Concomitant]
  10. AMBIEN [Concomitant]

REACTIONS (6)
  - AGGRESSION [None]
  - AMPUTATION [None]
  - DEPRESSION [None]
  - PAIN IN EXTREMITY [None]
  - STENT PLACEMENT [None]
  - SUICIDAL BEHAVIOUR [None]
